FAERS Safety Report 21713171 (Version 1)
Quarter: 2022Q4

REPORT INFORMATION
  Report Type: Spontaneous
  Country: US (occurrence: None)
  Receive Date: 20221208
  Receipt Date: 20221208
  Transmission Date: 20230112
  Serious: Yes (Life-Threatening)
  Sender: FDA-Public Use
  Company Number: None

PATIENT
  Age: 66 Year
  Sex: Male
  Weight: 102 kg

DRUGS (1)
  1. LISINOPRIL [Suspect]
     Active Substance: LISINOPRIL
     Indication: Hypertension
     Dosage: ONE-HALF TABLET BY MOUTH EVERY DAY MG     EVERY DAY  PO
     Route: 048
     Dates: start: 20210820, end: 20221018

REACTIONS (1)
  - Angioedema [None]

NARRATIVE: CASE EVENT DATE: 20221018
